FAERS Safety Report 23173877 (Version 1)
Quarter: 2023Q4

REPORT INFORMATION
  Report Type: Spontaneous
  Country: US (occurrence: US)
  Receive Date: 20231111
  Receipt Date: 20231111
  Transmission Date: 20240110
  Serious: Yes (Hospitalization, Other)
  Sender: FDA-Public Use
  Company Number: US-AMGEN-USASP2023195408

PATIENT
  Age: 80 Year
  Sex: Male

DRUGS (1)
  1. RITUXIMAB [Suspect]
     Active Substance: RITUXIMAB
     Indication: Acquired factor VIII deficiency
     Dosage: UNK
     Route: 065

REACTIONS (15)
  - Haemarthrosis [Unknown]
  - Gastrointestinal haemorrhage [Unknown]
  - Cardiac arrest [Unknown]
  - Atrioventricular block complete [Unknown]
  - Myocardial infarction [Unknown]
  - Atrial fibrillation [Unknown]
  - Coronary artery disease [Unknown]
  - Hypertension [Unknown]
  - Anaemia [Unknown]
  - Blood creatinine increased [Unknown]
  - Activated partial thromboplastin time prolonged [Unknown]
  - Blood potassium increased [Unknown]
  - Blood lactic acid increased [Unknown]
  - Drug effective for unapproved indication [Unknown]
  - Off label use [Unknown]
